FAERS Safety Report 6421751-3 (Version None)
Quarter: 2009Q4

REPORT INFORMATION
  Report Type: 
  Country: None (occurrence: None)
  Receive Date: 20091030
  Receipt Date: 20091020
  Transmission Date: 20100525
  Serious: Yes (Death, Hospitalization, Other)
  Sender: FDA-Public Use
  Company Number: US-ELI_LILLY_AND_COMPANY-US200910005121

PATIENT
  Age: 81 Year
  Sex: Female

DRUGS (3)
  1. FORTEO [Suspect]
     Indication: OSTEOPOROSIS
     Dosage: 20 UG, UNK
     Dates: start: 20071101, end: 20090901
  2. ATIVAN [Concomitant]
  3. SPIRIVA [Concomitant]

REACTIONS (3)
  - DEATH [None]
  - HIP FRACTURE [None]
  - HOSPICE CARE [None]
